FAERS Safety Report 8206992-7 (Version None)
Quarter: 2012Q1

REPORT INFORMATION
  Report Type: 
  Country: None (occurrence: None)
  Receive Date: 20120314
  Receipt Date: 20120302
  Transmission Date: 20120608
  Serious: Yes (Other)
  Sender: FDA-Public Use
  Company Number: US-ELI_LILLY_AND_COMPANY-US201111003565

PATIENT
  Sex: Female

DRUGS (25)
  1. XYLOCAINE [Concomitant]
     Dosage: UNK, EVERY 6 HRS
  2. VALIUM [Concomitant]
     Dosage: UNK, EVERY 6 HRS
  3. PLAVIX [Concomitant]
  4. FLOVENT [Concomitant]
     Dosage: UNK, BID
  5. LORTAB [Concomitant]
     Dosage: UNK, EVERY 4 HRS
  6. FIBER [Concomitant]
     Dosage: UNK, QD
  7. FORTEO [Suspect]
     Dosage: 20 UG, QD
  8. VITAMIN B-12 [Concomitant]
     Dosage: UNK, 2/M
  9. IRON [Concomitant]
  10. VITAMIN D [Concomitant]
  11. CEPHRADINE [Concomitant]
     Dosage: UNK, EVERY 6 HRS
  12. THEOPHYLLINE [Concomitant]
     Indication: CARDIAC DISORDER
  13. METOPROLOL SUCCINATE [Concomitant]
     Indication: CARDIAC DISORDER
     Dosage: UNK, BID
  14. FORTEO [Suspect]
     Indication: OSTEOPOROSIS
     Dosage: 20 UG, QD
     Dates: start: 20110928
  15. ZANTAC [Concomitant]
     Dosage: UNK, BID
  16. ATROVENT [Concomitant]
  17. LIDOCAINE [Concomitant]
     Dosage: UNK, BID
  18. ASCORBIC ACID [Concomitant]
  19. PROMETHAZINE [Concomitant]
     Dosage: UNK, EVERY 6 HRS
  20. OXYGEN [Concomitant]
     Dosage: UNK
     Dates: start: 20080101
  21. PAXIL [Concomitant]
     Dosage: UNK, QD
  22. FORTEO [Suspect]
     Dosage: 20 UG, QD
  23. PROAIR HFA [Concomitant]
     Dosage: UNK, PRN
  24. ISOSORB                            /00586302/ [Concomitant]
     Indication: CARDIAC DISORDER
  25. ASPIRIN [Concomitant]
     Indication: CARDIAC DISORDER
     Dosage: UNK, QD

REACTIONS (15)
  - VASCULAR INJURY [None]
  - HYPOTONIA [None]
  - CATHETERISATION CARDIAC NORMAL [None]
  - CONTUSION [None]
  - UNDERWEIGHT [None]
  - DYSPNOEA [None]
  - FALL [None]
  - TRAUMATIC HAEMATOMA [None]
  - OEDEMA PERIPHERAL [None]
  - DYSPNOEA EXERTIONAL [None]
  - HYPERHIDROSIS [None]
  - FATIGUE [None]
  - CHRONIC OBSTRUCTIVE PULMONARY DISEASE [None]
  - FEELING ABNORMAL [None]
  - JOINT DISLOCATION [None]
